FAERS Safety Report 9738413 (Version 2)
Quarter: 2013Q4

REPORT INFORMATION
  Report Type: Spontaneous
  Country: NO (occurrence: NO)
  Receive Date: 20131208
  Receipt Date: 20131226
  Transmission Date: 20140711
  Serious: Yes (Hospitalization)
  Sender: FDA-Public Use
  Company Number: NO-ROCHE-1313413

PATIENT
  Sex: Female

DRUGS (1)
  1. MABTHERA [Suspect]
     Indication: B-CELL LYMPHOMA
     Route: 042
     Dates: start: 20130531, end: 20130905

REACTIONS (6)
  - Myocardial infarction [Recovering/Resolving]
  - Coronary artery disease [Unknown]
  - Chest pain [Unknown]
  - Infusion related reaction [Unknown]
  - Tremor [Unknown]
  - Chills [Unknown]
